FAERS Safety Report 23649105 (Version 1)
Quarter: 2024Q1

REPORT INFORMATION
  Report Type: Spontaneous
  Country: GB (occurrence: GB)
  Receive Date: 20240319
  Receipt Date: 20240319
  Transmission Date: 20240410
  Serious: Yes (Other)
  Sender: FDA-Public Use
  Company Number: GB-JAZZ PHARMACEUTICALS-2024-IT-004295

PATIENT
  Age: 61 Year
  Sex: Male

DRUGS (2)
  1. LEVOFLOXACIN [Suspect]
     Active Substance: LEVOFLOXACIN
     Indication: Product used for unknown indication
     Dosage: UNK
     Route: 065
  2. VYXEOS [Suspect]
     Active Substance: CYTARABINE\DAUNORUBICIN
     Indication: Acute myeloid leukaemia
     Dosage: 44/100 MG/M2
     Route: 065
     Dates: start: 20191130

REACTIONS (9)
  - Pneumocystis jirovecii pneumonia [Unknown]
  - Pneumonia viral [Unknown]
  - Proteinuria [Unknown]
  - Chronic graft versus host disease in lung [Unknown]
  - Febrile neutropenia [Unknown]
  - Blood creatinine increased [Unknown]
  - Chronic graft versus host disease in skin [Unknown]
  - Pneumonia pseudomonal [Unknown]
  - Mucosal inflammation [Unknown]

NARRATIVE: CASE EVENT DATE: 20191209
